FAERS Safety Report 7509891-9 (Version None)
Quarter: 2011Q2

REPORT INFORMATION
  Report Type: 
  Country: None (occurrence: None)
  Receive Date: 20110527
  Receipt Date: 20110519
  Transmission Date: 20111010
  Serious: Yes (Other)
  Sender: FDA-Public Use
  Company Number: US-SANOFI-AVENTIS-2011SA022191

PATIENT
  Age: 73 Year
  Sex: Female

DRUGS (2)
  1. SOLOSTAR [Suspect]
     Dates: start: 20090101
  2. LANTUS [Suspect]
     Dosage: DOSE:70 UNIT(S)
     Route: 058
     Dates: start: 20090101

REACTIONS (5)
  - INJURY ASSOCIATED WITH DEVICE [None]
  - VISUAL ACUITY REDUCED [None]
  - PRODUCT QUALITY ISSUE [None]
  - DYSPHEMIA [None]
  - TRANSIENT ISCHAEMIC ATTACK [None]
